FAERS Safety Report 19682767 (Version 1)
Quarter: 2021Q3

REPORT INFORMATION
  Report Type: Spontaneous
  Country: JP (occurrence: JP)
  Receive Date: 20210810
  Receipt Date: 20210810
  Transmission Date: 20211014
  Serious: Yes (Death, Other)
  Sender: FDA-Public Use
  Company Number: JP-TAKEDA-2021TJP063347

PATIENT
  Sex: Male

DRUGS (1)
  1. TAKEPRON INTRAVENOUS 30MG. [Suspect]
     Active Substance: LANSOPRAZOLE
     Indication: PRODUCT USED FOR UNKNOWN INDICATION
     Dosage: DOSAGE IS UNKNOWN
     Route: 042

REACTIONS (2)
  - Gastric ulcer haemorrhage [Not Recovered/Not Resolved]
  - Death [Fatal]
